FAERS Safety Report 22115724 (Version 1)
Quarter: 2023Q1

REPORT INFORMATION
  Report Type: Spontaneous
  Country: US (occurrence: None)
  Receive Date: 20230319
  Receipt Date: 20230319
  Transmission Date: 20230417
  Serious: Yes (Hospitalization)
  Sender: FDA-Public Use
  Company Number: None

PATIENT
  Age: 55 Year
  Sex: Female
  Weight: 65.25 kg

DRUGS (8)
  1. .DELTA.8-TETRAHYDROCANNABINOL\HERBALS [Suspect]
     Active Substance: .DELTA.8-TETRAHYDROCANNABINOL\HERBALS
     Indication: Substance use
     Dosage: OTHER QUANTITY : 1 1;?
     Route: 048
  2. ESCITALOPRAM OXALATE [Concomitant]
     Active Substance: ESCITALOPRAM OXALATE
  3. D3 Dhea Azo [Concomitant]
  4. VITAMIN B12 [Concomitant]
     Active Substance: CYANOCOBALAMIN
  5. EVENING PRIMROSE [Concomitant]
  6. Curamine [Concomitant]
  7. APPLE CIDER VINEGAR [Concomitant]
     Active Substance: APPLE CIDER VINEGAR
  8. Hour glass fit Uqora [Concomitant]

REACTIONS (7)
  - Dry mouth [None]
  - Tremor [None]
  - Muscle spasms [None]
  - Dyskinesia [None]
  - Decreased appetite [None]
  - Disorientation [None]
  - Feeling abnormal [None]

NARRATIVE: CASE EVENT DATE: 20230317
